FAERS Safety Report 14498186 (Version 2)
Quarter: 2018Q1

REPORT INFORMATION
  Report Type: Spontaneous
  Country: FR (occurrence: FR)
  Receive Date: 20180207
  Receipt Date: 20180301
  Transmission Date: 20180509
  Serious: Yes (Hospitalization)
  Sender: FDA-Public Use
  Company Number: FR-PFIZER INC-2018049256

PATIENT
  Age: 65 Year
  Sex: Male
  Weight: 68 kg

DRUGS (10)
  1. ACTRAPID [Concomitant]
     Active Substance: INSULIN HUMAN
     Indication: TYPE 1 DIABETES MELLITUS
     Dosage: 36 IU, 1X/DAY
     Route: 058
  2. CEFTRIAXONE SODIUM. [Suspect]
     Active Substance: CEFTRIAXONE SODIUM
     Dosage: 2 G, 1X/DAY
     Route: 042
     Dates: start: 20171116, end: 20171218
  3. ESCITALOPRAM [Concomitant]
     Active Substance: ESCITALOPRAM OXALATE
     Dosage: 10 MG, 1X/DAY
     Route: 048
  4. LEVETIRACETAM. [Suspect]
     Active Substance: LEVETIRACETAM
     Indication: TONIC CLONIC MOVEMENTS
     Dosage: 1000 MG, 1X/DAY
     Route: 048
     Dates: start: 20171129, end: 20180103
  5. CUBICIN [Suspect]
     Active Substance: DAPTOMYCIN
     Indication: MEDICAL DEVICE SITE JOINT INFECTION
     Dosage: 500 MG, ALTERNATE DAY
     Route: 042
     Dates: start: 20171116, end: 20171218
  6. STILNOX [Concomitant]
     Active Substance: ZOLPIDEM TARTRATE
     Dosage: 10 MG, 1X/DAY
     Route: 048
  7. CALCIPARINE [Concomitant]
     Active Substance: HEPARIN CALCIUM
     Indication: THROMBOSIS PROPHYLAXIS
     Dosage: 0.2 IU, 2X/DAY (EVERY 12 HOURS)
     Route: 058
  8. LANTUS [Concomitant]
     Active Substance: INSULIN GLARGINE
     Indication: TYPE 1 DIABETES MELLITUS
     Dosage: 12 IU, 1X/DAY
     Route: 058
  9. PREGABALINE [Concomitant]
     Active Substance: PREGABALIN
     Dosage: 150 MG, 1X/DAY (75 MG IN THE MORNING AND 150MG IN THE EVENING)
     Route: 048
  10. OMEPRAZOLE. [Concomitant]
     Active Substance: OMEPRAZOLE
     Indication: GASTROOESOPHAGEAL REFLUX DISEASE
     Dosage: 40 MG, 1X/DAY
     Route: 048

REACTIONS (1)
  - Drug reaction with eosinophilia and systemic symptoms [Recovered/Resolved]

NARRATIVE: CASE EVENT DATE: 20171213
